FAERS Safety Report 7201007-1 (Version None)
Quarter: 2010Q4

REPORT INFORMATION
  Report Type: 
  Country: None (occurrence: None)
  Receive Date: 20101228
  Receipt Date: 20100927
  Transmission Date: 20110411
  Serious: No
  Sender: FDA-Public Use
  Company Number: US-MYLANLABS-2010S1017883

PATIENT
  Sex: Female

DRUGS (1)
  1. TRAZODONE HCL [Suspect]

REACTIONS (6)
  - ANGER [None]
  - CONFUSIONAL STATE [None]
  - INSOMNIA [None]
  - MUSCLE TWITCHING [None]
  - RESTLESSNESS [None]
  - SUICIDAL IDEATION [None]
